FAERS Safety Report 19950787 (Version 7)
Quarter: 2022Q1

REPORT INFORMATION
  Report Type: Spontaneous
  Country: US (occurrence: US)
  Receive Date: 20211013
  Receipt Date: 20220213
  Transmission Date: 20220424
  Serious: Yes (Death, Hospitalization, Other)
  Sender: FDA-Public Use
  Company Number: US-ALXN-A202111229

PATIENT
  Sex: Female

DRUGS (1)
  1. SOLIRIS [Suspect]
     Active Substance: ECULIZUMAB
     Indication: Myasthenia gravis
     Dosage: UNK
     Route: 065

REACTIONS (4)
  - Cardiac arrest [Fatal]
  - Acute respiratory distress syndrome [Fatal]
  - Suspected COVID-19 [Fatal]
  - Illness [Unknown]
